FAERS Safety Report 17047232 (Version 1)
Quarter: 2019Q4

REPORT INFORMATION
  Report Type: Spontaneous
  Country: US (occurrence: US)
  Receive Date: 20191119
  Receipt Date: 20191119
  Transmission Date: 20200122
  Serious: Yes (Hospitalization)
  Sender: FDA-Public Use
  Company Number: US-ULTRAGENYX PHARMACEUTICAL INC.-US-UGNX-19-00159

PATIENT
  Sex: Male
  Weight: 40.86 kg

DRUGS (1)
  1. MEPSEVII [Suspect]
     Active Substance: VESTRONIDASE ALFA-VJBK
     Indication: MUCOPOLYSACCHARIDOSIS
     Dosage: 10 MG/5ML SINGLE DOSE VIAL (SDV)
     Route: 042
     Dates: start: 20180602

REACTIONS (1)
  - Respiratory failure [Unknown]
